FAERS Safety Report 13891598 (Version 1)
Quarter: 2017Q3

REPORT INFORMATION
  Report Type: Spontaneous
  Country: KR (occurrence: KR)
  Receive Date: 20170822
  Receipt Date: 20170822
  Transmission Date: 20171127
  Serious: Yes (Other)
  Sender: FDA-Public Use
  Company Number: KR-PACIRA PHARMACEUTICALS, INC.-2017DEPKR00747

PATIENT

DRUGS (1)
  1. DEPOCYT [Suspect]
     Active Substance: CYTARABINE
     Indication: LYMPHOMA
     Dosage: 50 MG, 1-2 TIMES A MONTH
     Route: 037
     Dates: start: 201701

REACTIONS (1)
  - Quadriplegia [Not Recovered/Not Resolved]

NARRATIVE: CASE EVENT DATE: 201707
